FAERS Safety Report 22006361 (Version 1)
Quarter: 2023Q1

REPORT INFORMATION
  Report Type: Spontaneous
  Country: CA (occurrence: CA)
  Receive Date: 20230217
  Receipt Date: 20230217
  Transmission Date: 20230417
  Serious: Yes (Hospitalization, Other)
  Sender: FDA-Public Use
  Company Number: CA-TEVA-2023-CA-2855273

PATIENT
  Age: 72 Year
  Sex: Male

DRUGS (8)
  1. ASPIRIN [Suspect]
     Active Substance: ASPIRIN
     Indication: Angina pectoris
     Dosage: 975 MILLIGRAM DAILY;
     Route: 048
  2. DOXYCYCLINE [Suspect]
     Active Substance: DOXYCYCLINE
     Indication: Cough
     Dosage: 200 MILLIGRAM DAILY; THERAPY DURATION : 10.0 DAYS
     Route: 048
  3. LOVASTATIN [Suspect]
     Active Substance: LOVASTATIN
     Indication: Dyslipidaemia
     Dosage: 40 MILLIGRAM DAILY;
     Route: 048
  4. DANAZOL [Suspect]
     Active Substance: DANAZOL
     Indication: Immune thrombocytopenia
     Dosage: 600 MILLIGRAM DAILY;
     Route: 048
  5. ATENOLOL [Concomitant]
     Active Substance: ATENOLOL
     Indication: Essential hypertension
     Dosage: 50 MILLIGRAM DAILY;
     Route: 048
  6. DIPYRIDAMOLE [Concomitant]
     Active Substance: DIPYRIDAMOLE
     Indication: Dyslipidaemia
     Dosage: 225 MILLIGRAM DAILY;
     Route: 048
  7. PREDNISONE [Concomitant]
     Active Substance: PREDNISONE
     Indication: Immune thrombocytopenia
     Dosage: 5 MILLIGRAM DAILY;
     Route: 048
  8. PREDNISONE [Concomitant]
     Active Substance: PREDNISONE
     Dosage: 7.5 MILLIGRAM DAILY;
     Route: 048

REACTIONS (7)
  - Acute kidney injury [Recovered/Resolved]
  - Chromaturia [Recovered/Resolved]
  - Muscular weakness [Recovered/Resolved]
  - Myalgia [Recovered/Resolved]
  - Myoglobinuria [Recovered/Resolved]
  - Pain [Recovered/Resolved]
  - Rhabdomyolysis [Recovered/Resolved]
